FAERS Safety Report 20577710 (Version 1)
Quarter: 2022Q1

REPORT INFORMATION
  Report Type: Spontaneous
  Country: IN (occurrence: IN)
  Receive Date: 20220310
  Receipt Date: 20220310
  Transmission Date: 20220424
  Serious: Yes (Hospitalization, Other)
  Sender: FDA-Public Use
  Company Number: IN-MLMSERVICE-20220228-3399727-3

PATIENT
  Age: 47 Year
  Sex: Male

DRUGS (11)
  1. METHYLPREDNISOLONE [Suspect]
     Active Substance: METHYLPREDNISOLONE
     Indication: COVID-19
     Dosage: 8 MG, 3X/DAY (FREQ:8 H)
     Dates: start: 2021
  2. METHYLPREDNISOLONE [Suspect]
     Active Substance: METHYLPREDNISOLONE
     Dosage: UNK (TAPERED IN 8 D)
  3. IVERMECTIN [Concomitant]
     Active Substance: IVERMECTIN
     Dosage: UNK
  4. AZITHROMYCIN [Concomitant]
     Active Substance: AZITHROMYCIN
     Dosage: UNK
  5. VITAMIN C [Concomitant]
     Active Substance: ASCORBIC ACID
     Dosage: UNK
  6. AMLODIPINE [Concomitant]
     Active Substance: AMLODIPINE BESYLATE
     Indication: Hypertension
     Dosage: UNK
  7. ZINC [Concomitant]
     Active Substance: ZINC
     Dosage: UNK
  8. OFLOXACIN [Concomitant]
     Active Substance: OFLOXACIN
     Dosage: UNK
  9. INSULIN NOS [Concomitant]
     Active Substance: INSULIN NOS
     Indication: Diabetes mellitus
     Dosage: UNK (30/70 PRE-MIX)
  10. CLARITHROMYCIN [Concomitant]
     Active Substance: CLARITHROMYCIN
     Dosage: UNK
  11. CEFIXIME [Concomitant]
     Active Substance: CEFIXIME
     Dosage: UNK

REACTIONS (1)
  - Rhinocerebral mucormycosis [Unknown]

NARRATIVE: CASE EVENT DATE: 20210101
